FAERS Safety Report 25455336 (Version 2)
Quarter: 2025Q2

REPORT INFORMATION
  Report Type: Spontaneous
  Country: US (occurrence: US)
  Receive Date: 20250619
  Receipt Date: 20250625
  Transmission Date: 20250717
  Serious: Yes (Life-Threatening, Hospitalization, Other)
  Sender: DR REDDYS
  Company Number: US-MLMSERVICE-20250602-PI528417-00150-1

PATIENT
  Age: 19 Year
  Sex: Female

DRUGS (4)
  1. FLUCONAZOLE [Suspect]
     Active Substance: FLUCONAZOLE
     Indication: Coccidioidomycosis
  2. POSACONAZOLE [Suspect]
     Active Substance: POSACONAZOLE
     Indication: Coccidioidomycosis
  3. ACYCLOVIR [Suspect]
     Active Substance: ACYCLOVIR
     Indication: Rash morbilliform
  4. ACYCLOVIR [Suspect]
     Active Substance: ACYCLOVIR
     Indication: Rash pruritic

REACTIONS (6)
  - Drug reaction with eosinophilia and systemic symptoms [Recovered/Resolved]
  - Angioedema [Recovered/Resolved]
  - Alanine aminotransferase increased [Recovered/Resolved]
  - Aspartate aminotransferase increased [Recovered/Resolved]
  - Treatment noncompliance [Unknown]
  - Product use in unapproved indication [Unknown]
